FAERS Safety Report 24375036 (Version 3)
Quarter: 2024Q4

REPORT INFORMATION
  Report Type: Spontaneous
  Country: JM (occurrence: JM)
  Receive Date: 20240927
  Receipt Date: 20241022
  Transmission Date: 20250115
  Serious: Yes (Death)
  Sender: BOEHRINGER INGELHEIM
  Company Number: JM-BoehringerIngelheim-2024-BI-053736

PATIENT
  Age: 80 Year
  Sex: Female

DRUGS (2)
  1. PRAXBIND [Suspect]
     Active Substance: IDARUCIZUMAB
     Indication: Procoagulant therapy
     Dosage: 2/50 ML
     Dates: start: 202408
  2. PRAXBIND [Suspect]
     Active Substance: IDARUCIZUMAB
     Indication: Gastric haemorrhage

REACTIONS (1)
  - Gastric haemorrhage [Fatal]

NARRATIVE: CASE EVENT DATE: 20240801
